FAERS Safety Report 12466214 (Version 2)
Quarter: 2019Q4

REPORT INFORMATION
  Report Type: Spontaneous
  Country: IT (occurrence: IT)
  Receive Date: 20160603
  Receipt Date: 20191127
  Transmission Date: 20200122
  Serious: Yes (Life-Threatening)
  Sender: FDA-Public Use
  Company Number: IT-TEVA-659492ACC

PATIENT
  Age: 30 Year
  Sex: Female

DRUGS (1)
  1. NICARDIPINE [Suspect]
     Active Substance: NICARDIPINE
     Indication: TOCOLYSIS
     Route: 048

REACTIONS (3)
  - Off label use of device [Unknown]
  - Maternal exposure during pregnancy [Unknown]
  - Acute pulmonary oedema [Unknown]
